FAERS Safety Report 8511307-0 (Version None)
Quarter: 2012Q3

REPORT INFORMATION
  Report Type: 
  Country: None (occurrence: None)
  Receive Date: 20120716
  Receipt Date: 20120706
  Transmission Date: 20120928
  Serious: Yes (Other)
  Sender: FDA-Public Use
  Company Number: CA-SANOFI-AVENTIS-2012SA017100

PATIENT
  Age: 67 Year
  Sex: Female

DRUGS (10)
  1. LUMIGAN [Concomitant]
     Indication: GLAUCOMA
     Route: 047
  2. DIGOXIN [Concomitant]
     Route: 048
     Dates: end: 20120301
  3. METFORMIN HYDROCHLORIDE [Concomitant]
     Route: 048
  4. ASPIRIN [Concomitant]
     Route: 048
     Dates: start: 20120301
  5. RABEPRAZOLE SODIUM [Concomitant]
     Route: 048
  6. METOPROLOL TARTRATE [Concomitant]
     Route: 048
     Dates: end: 20120301
  7. MULTAQ [Suspect]
     Indication: ATRIAL FIBRILLATION
     Route: 048
     Dates: start: 20120305
  8. IRBESARTAN [Concomitant]
     Route: 048
  9. GLICLAZIDE [Concomitant]
     Route: 048
  10. PRADAXA [Concomitant]
     Route: 048
     Dates: end: 20120301

REACTIONS (4)
  - DIZZINESS [None]
  - DYSPNOEA [None]
  - HEART RATE IRREGULAR [None]
  - PALPITATIONS [None]
